FAERS Safety Report 18376445 (Version 2)
Quarter: 2022Q3

REPORT INFORMATION
  Report Type: Spontaneous
  Country: JP (occurrence: JP)
  Receive Date: 20201013
  Receipt Date: 20220713
  Transmission Date: 20221026
  Serious: Yes (Hospitalization, Other)
  Sender: FDA-Public Use
  Company Number: JP-GSKNCCC-CASE-01050053_AE-35000

PATIENT

DRUGS (4)
  1. LAMICTAL [Suspect]
     Active Substance: LAMOTRIGINE
     Indication: Epilepsy
     Dosage: UNK
     Route: 048
  2. VALPROATE SODIUM [Concomitant]
     Active Substance: VALPROATE SODIUM
     Indication: Epilepsy
     Dosage: UNK
  3. VIMPAT [Concomitant]
     Active Substance: LACOSAMIDE
     Indication: Epilepsy
     Dosage: UNK
  4. LEVETIRACETAM [Concomitant]
     Active Substance: LEVETIRACETAM
     Indication: Epilepsy
     Dosage: UNK

REACTIONS (4)
  - Epilepsy [Recovered/Resolved]
  - Fall [Recovered/Resolved]
  - Cerebral haemorrhage [Recovered/Resolved]
  - Drug eruption [Unknown]
